FAERS Safety Report 8791441 (Version 1)
Quarter: 2012Q4

REPORT INFORMATION
  Report Type: Spontaneous
  Country: US (occurrence: None)
  Receive Date: 20120912
  Receipt Date: 20120912
  Transmission Date: 20130627
  Serious: Yes (Other)
  Sender: FDA-Public Use
  Company Number: 20120529

PATIENT
  Age: 64 Year
  Sex: Female

DRUGS (15)
  1. VENOFER [Suspect]
     Dates: start: 20120524, end: 20120524
  2. VENOFER [Suspect]
  3. VENOFER [Suspect]
     Route: 045
  4. VENOFER [Suspect]
  5. NORVASC [Concomitant]
  6. PRED FORTE [Concomitant]
  7. SINGULAIR [Concomitant]
  8. SYMBICORT [Concomitant]
  9. VENTOLIN [Concomitant]
  10. VITAMIN D3 [Concomitant]
  11. OXYGEN, PM ONLY [Concomitant]
  12. LEVOTHYROXINE [Concomitant]
  13. FLUDROCORTISONE [Concomitant]
  14. HYDROCORTISONE [Concomitant]
  15. LANSOPRAZOLE [Concomitant]

REACTIONS (1)
  - Phlebitis [None]
